FAERS Safety Report 11031001 (Version 1)
Quarter: 2015Q2

REPORT INFORMATION
  Report Type: Spontaneous
  Country: DE (occurrence: None)
  Receive Date: 20150413
  Receipt Date: 20150413
  Transmission Date: 20150821
  Serious: Yes (Disabling)
  Sender: FDA-Public Use
  Company Number: DE-H14001-15-00552

PATIENT
  Age: 50 Year
  Sex: Male

DRUGS (1)
  1. CLINDAMYCIN [Suspect]
     Active Substance: CLINDAMYCIN\CLINDAMYCIN PHOSPHATE
     Indication: PERIODONTITIS
     Dosage: 3 DOSAGE FORMS (1 DOSAGE FORMS,3 IN 1 D),UNKNOWN

REACTIONS (1)
  - Hemiplegia [None]

NARRATIVE: CASE EVENT DATE: 20150112
